FAERS Safety Report 24562586 (Version 1)
Quarter: 2024Q4

REPORT INFORMATION
  Report Type: Spontaneous
  Country: SE (occurrence: SE)
  Receive Date: 20241029
  Receipt Date: 20241029
  Transmission Date: 20250115
  Serious: Yes (Hospitalization)
  Sender: SAMSUNG BIOEPIS
  Company Number: None

PATIENT
  Age: 69 Year
  Sex: Female

DRUGS (6)
  1. IMRALDI [Suspect]
     Active Substance: ADALIMUMAB
     Indication: Rheumatoid arthritis
     Dosage: 1 INJECTION EVERY TWO WEEKS.
     Route: 058
     Dates: start: 2019, end: 2023
  2. IMRALDI [Suspect]
     Active Substance: ADALIMUMAB
     Dosage: 1 INJEKTION VARANNAN VECKA.
     Route: 058
     Dates: start: 202307, end: 202311
  3. Folsyra [Concomitant]
     Indication: Product used for unknown indication
     Dosage: 2X1 1 DAY A WEEK
     Route: 048
  4. ZOLPIDEM [Concomitant]
     Active Substance: ZOLPIDEM TARTRATE
     Indication: Product used for unknown indication
     Dosage: 1 TN
     Route: 048
  5. LITHIUM SULFATE [Concomitant]
     Active Substance: LITHIUM SULFATE
     Indication: Product used for unknown indication
     Dosage: 2+1
     Route: 048
  6. ACETAMINOPHEN [Concomitant]
     Active Substance: ACETAMINOPHEN
     Indication: Product used for unknown indication
     Dosage: 2X4
     Route: 048

REACTIONS (2)
  - Cardiac failure [Unknown]
  - Dilated cardiomyopathy [Unknown]

NARRATIVE: CASE EVENT DATE: 20231101
